FAERS Safety Report 4654844-1 (Version None)
Quarter: 2005Q2

REPORT INFORMATION
  Report Type: 
  Country: None (occurrence: None)
  Receive Date: 20050505
  Receipt Date: 20050404
  Transmission Date: 20051028
  Serious: No
  Sender: FDA-Public Use
  Company Number: 2005S1002106

PATIENT
  Age: 59 Year
  Sex: Male
  Weight: 77.1115 kg

DRUGS (11)
  1. FENTANYL TRANSDERMAL SYSTEM (75 MCG/HR) [Suspect]
     Indication: PAIN
     Dosage: 75 MCG/HR;Q3D;TDERM
     Route: 061
     Dates: start: 20050401, end: 20050401
  2. CLONAZEPAM [Concomitant]
  3. PAROXETINE HYDROCHLORIDE [Concomitant]
  4. LANSOPRAZLE [Concomitant]
  5. METOPROLOL SUCCINATE [Concomitant]
  6. RAMIPRIL [Concomitant]
  7. CLOPIDOGREL BISULFATE [Concomitant]
  8. ROSUVASTATIN [Concomitant]
  9. VALDECOXIB [Concomitant]
  10. FOLIC ACID [Concomitant]
  11. NICOTINIC ACID [Concomitant]

REACTIONS (3)
  - DRUG INEFFECTIVE [None]
  - DRUG WITHDRAWAL SYNDROME [None]
  - HEADACHE [None]
